FAERS Safety Report 8563819-1 (Version None)
Quarter: 2012Q3

REPORT INFORMATION
  Report Type: 
  Country: None (occurrence: None)
  Receive Date: 20120727
  Receipt Date: 20120727
  Transmission Date: 20120928
  Serious: Yes (Hospitalization)
  Sender: FDA-Public Use
  Company Number: None

PATIENT
  Sex: Male
  Weight: 122 kg

DRUGS (6)
  1. CYTARABINE [Suspect]
     Dosage: 70 MG
  2. DOXORUBICIN HCL [Suspect]
     Dosage: 154 MG
  3. METHOTREXATE [Suspect]
     Dosage: 30 MG
  4. PEG-L-ASPARAGINASE (K-H) [Suspect]
     Dosage: 6200 IU
  5. METHYLPREDNISOLONE [Suspect]
     Dosage: 3852 MG
  6. VINCRISTINE SULFATE [Suspect]
     Dosage: 5 MG

REACTIONS (17)
  - HYPOTHERMIA [None]
  - AGGRESSION [None]
  - TACHYCARDIA [None]
  - BRAIN OEDEMA [None]
  - SYSTEMIC INFLAMMATORY RESPONSE SYNDROME [None]
  - ENTEROCOCCAL SEPSIS [None]
  - HEPATIC FAILURE [None]
  - INTERNATIONAL NORMALISED RATIO INCREASED [None]
  - MELAENA [None]
  - NON-ALCOHOLIC STEATOHEPATITIS [None]
  - HYPERGLYCAEMIA [None]
  - NO THERAPEUTIC RESPONSE [None]
  - CONDITION AGGRAVATED [None]
  - HAEMATEMESIS [None]
  - OLIGURIA [None]
  - CLOSTRIDIUM DIFFICILE COLITIS [None]
  - HEPATIC ENCEPHALOPATHY [None]
